FAERS Safety Report 7789836-7 (Version None)
Quarter: 2011Q3

REPORT INFORMATION
  Report Type: 
  Country: None (occurrence: None)
  Receive Date: 20110930
  Receipt Date: 20110929
  Transmission Date: 20111222
  Serious: Yes (Other)
  Sender: FDA-Public Use
  Company Number: BE-BRISTOL-MYERS SQUIBB COMPANY-15949753

PATIENT
  Age: 40 Year
  Sex: Female

DRUGS (11)
  1. ORENCIA [Suspect]
     Indication: RHEUMATOID ARTHRITIS
     Dosage: INTERRUPTED IN AUG10.REINTIATED:2FEB11,LAST PERFUSION:2MAR11.
     Route: 042
     Dates: start: 20100301
  2. GESTODENE [Concomitant]
  3. PREDNISOLONE [Concomitant]
  4. TRAMADOL HCL [Concomitant]
  5. LEVOTHYROXINE SODIUM [Concomitant]
  6. ACETAMINOPHEN [Concomitant]
  7. NEXIUM [Concomitant]
  8. CITALOPRAM [Concomitant]
  9. GLUCOPHAGE [Concomitant]
  10. ASAFLOW [Concomitant]
  11. PIROXICAM [Concomitant]

REACTIONS (3)
  - HYPERHIDROSIS [None]
  - MYALGIA [None]
  - HYPERSENSITIVITY [None]
